FAERS Safety Report 6486041-1 (Version None)
Quarter: 2009Q4

REPORT INFORMATION
  Report Type: 
  Country: None (occurrence: None)
  Receive Date: 20091209
  Receipt Date: 20090716
  Transmission Date: 20100525
  Serious: No
  Sender: FDA-Public Use
  Company Number: PR-AMGEN-KDL356195

PATIENT
  Sex: Female

DRUGS (2)
  1. ENBREL [Suspect]
     Indication: RHEUMATOID ARTHRITIS
     Route: 058
     Dates: start: 20050601
  2. METHOTREXATE [Concomitant]
     Route: 048

REACTIONS (11)
  - FALL [None]
  - INJECTION SITE ERYTHEMA [None]
  - INJECTION SITE PAIN [None]
  - INJECTION SITE PRURITUS [None]
  - MOBILITY DECREASED [None]
  - PAIN IN EXTREMITY [None]
  - PNEUMONIA [None]
  - POLLAKIURIA [None]
  - RHEUMATOID ARTHRITIS [None]
  - SPINAL COMPRESSION FRACTURE [None]
  - URINE ODOUR ABNORMAL [None]
